FAERS Safety Report 14300806 (Version 2)
Quarter: 2019Q1

REPORT INFORMATION
  Report Type: Spontaneous
  Country: NL (occurrence: NL)
  Receive Date: 20171219
  Receipt Date: 20190111
  Transmission Date: 20190417
  Serious: Yes (Death, Hospitalization, Other)
  Sender: FDA-Public Use
  Company Number: NL-AUROBINDO-AUR-APL-2017-46092

PATIENT
  Age: 30 Year
  Sex: Male

DRUGS (5)
  1. PREDNISONE TABLET [Suspect]
     Active Substance: PREDNISONE
     Indication: TYPE 2 LEPRA REACTION
     Dosage: UNK
     Route: 065
  2. RIFAMPICIN [Concomitant]
     Active Substance: RIFAMPIN
     Indication: TYPE 2 LEPRA REACTION
     Dosage: UNK
     Route: 065
  3. THALIDOMIDE [Suspect]
     Active Substance: THALIDOMIDE
     Indication: TYPE 2 LEPRA REACTION
     Dosage: UNK
     Route: 065
  4. MINOCIN [Concomitant]
     Active Substance: MINOCYCLINE HYDROCHLORIDE
     Indication: TYPE 2 LEPRA REACTION
     Dosage: UNK
     Route: 065
  5. CLOFAZIMINE [Concomitant]
     Active Substance: CLOFAZIMINE
     Indication: TYPE 2 LEPRA REACTION
     Dosage: UNK
     Route: 065

REACTIONS (4)
  - Varicella zoster virus infection [Fatal]
  - Hepatic necrosis [Fatal]
  - Haemorrhage [Fatal]
  - Hepatic haemorrhage [Fatal]
